FAERS Safety Report 8877583 (Version 1)
Quarter: 2012Q4

REPORT INFORMATION
  Report Type: Spontaneous
  Country: US (occurrence: None)
  Receive Date: 20121026
  Receipt Date: 20121026
  Transmission Date: 20130627
  Serious: Yes (Other)
  Sender: FDA-Public Use
  Company Number: None

PATIENT
  Age: 22 Year
  Sex: Male
  Weight: 58.51 kg

DRUGS (2)
  1. OLANZAPINE [Suspect]
     Indication: AGGRESSION
     Route: 048
     Dates: start: 20100915, end: 20121029
  2. ZYPREXA [Suspect]
     Indication: OBSESSIVE-COMPULSIVE DISORDER
     Route: 048

REACTIONS (5)
  - Respiratory tract congestion [None]
  - Throat irritation [None]
  - Oral disorder [None]
  - Abnormal behaviour [None]
  - Blood prolactin increased [None]
